FAERS Safety Report 8586092-7 (Version None)
Quarter: 2012Q3

REPORT INFORMATION
  Report Type: 
  Country: None (occurrence: None)
  Receive Date: 20120810
  Receipt Date: 20120809
  Transmission Date: 20120928
  Serious: Yes (Hospitalization)
  Sender: FDA-Public Use
  Company Number: DE-ROCHE-1084502

PATIENT
  Age: 74 Year
  Sex: Male
  Weight: 74.9 kg

DRUGS (4)
  1. CARBOPLATIN [Suspect]
     Indication: NON-SMALL CELL LUNG CANCER
     Dosage: MOST RECENT DOSE RECEIVED 06/JUN/2012, LAST DOSE OF DRUG RECEIVED 460 MG
     Route: 042
     Dates: start: 20120404
  2. AVASTIN [Suspect]
     Indication: NON-SMALL CELL LUNG CANCER
     Dosage: MOST RECENT DOSE RECEIVED 06/JUN/2012, LAST DOSE OF DRUG RECEIVED 1125 MG
     Route: 042
     Dates: start: 20120425
  3. PLACEBO [Suspect]
     Indication: NON-SMALL CELL LUNG CANCER
     Route: 042
     Dates: start: 20120405
  4. PACLITAXEL [Suspect]
     Indication: NON-SMALL CELL LUNG CANCER
     Dosage: MOST RECENT DOSE RECEIVED 06/JUN/2012, LAST DOSE OF DRUG RECEIVED 269 MG
     Route: 042
     Dates: start: 20120404

REACTIONS (2)
  - PNEUMONITIS [None]
  - GENERAL PHYSICAL HEALTH DETERIORATION [None]
